FAERS Safety Report 10397587 (Version 2)
Quarter: 2014Q4

REPORT INFORMATION
  Report Type: Report from Study
  Country: US (occurrence: US)
  Receive Date: 20140820
  Receipt Date: 20141031
  Transmission Date: 20150528
  Serious: Yes (Other)
  Sender: FDA-Public Use
  Company Number: US-BRISTOL-MYERS SQUIBB COMPANY-21302831

PATIENT
  Age: 57 Year
  Sex: Female
  Weight: 70.75 kg

DRUGS (1)
  1. BYETTA [Suspect]
     Active Substance: EXENATIDE

REACTIONS (1)
  - Breast cancer [Unknown]
